FAERS Safety Report 7339031-0 (Version None)
Quarter: 2011Q1

REPORT INFORMATION
  Report Type: 
  Country: None (occurrence: None)
  Receive Date: 20110308
  Receipt Date: 20110223
  Transmission Date: 20110831
  Serious: Yes (Hospitalization)
  Sender: FDA-Public Use
  Company Number: FR-ELI_LILLY_AND_COMPANY-FR201103000109

PATIENT
  Sex: Female

DRUGS (5)
  1. CYMBALTA [Suspect]
     Indication: NEUROPATHY PERIPHERAL
     Dosage: UNK, DAILY (1/D)
     Route: 048
     Dates: start: 20080710, end: 20080820
  2. BENERVA [Concomitant]
  3. LANTUS [Concomitant]
  4. LEVOTHYROXINE SODIUM [Concomitant]
  5. COZAAR [Concomitant]

REACTIONS (4)
  - GENERAL PHYSICAL HEALTH DETERIORATION [None]
  - URINARY TRACT INFECTION [None]
  - HYPONATRAEMIA [None]
  - HYDRAEMIA [None]
